FAERS Safety Report 5354655-8 (Version None)
Quarter: 2007Q2

REPORT INFORMATION
  Report Type: 
  Country: None (occurrence: None)
  Receive Date: 20070612
  Receipt Date: 20070530
  Transmission Date: 20071010
  Serious: Yes (Hospitalization)
  Sender: FDA-Public Use
  Company Number: DE-AMGEN-UK227170

PATIENT
  Sex: Female
  Weight: 89 kg

DRUGS (1)
  1. NEUPOGEN [Suspect]
     Indication: CHEMOTHERAPY
     Route: 058
     Dates: start: 20070424, end: 20070502

REACTIONS (3)
  - BONE PAIN [None]
  - HEADACHE [None]
  - VISION BLURRED [None]
